FAERS Safety Report 16824414 (Version 1)
Quarter: 2019Q3

REPORT INFORMATION
  Report Type: Spontaneous
  Country: CA (occurrence: CA)
  Receive Date: 20190918
  Receipt Date: 20190918
  Transmission Date: 20191005
  Serious: Yes (Death)
  Sender: FDA-Public Use
  Company Number: CA-TEVA-2019-CA-1110402

PATIENT
  Age: 24 Year
  Sex: Male

DRUGS (4)
  1. 0.9% SODIUM CHLORIDE INJECTION, USP [Suspect]
     Active Substance: SODIUM CHLORIDE
     Indication: HAEMATEMESIS
     Route: 042
  2. PANTOPRAZOLE [Suspect]
     Active Substance: PANTOPRAZOLE
     Indication: HAEMATEMESIS
     Route: 042
  3. PANTOPRAZOLE [Suspect]
     Active Substance: PANTOPRAZOLE
     Indication: ABDOMINAL PAIN
  4. 0.9% SODIUM CHLORIDE INJECTION, USP [Suspect]
     Active Substance: SODIUM CHLORIDE
     Indication: ABDOMINAL PAIN

REACTIONS (5)
  - Oxygen saturation decreased [Fatal]
  - Cardio-respiratory arrest [Fatal]
  - Endotracheal intubation [Fatal]
  - Dyspnoea [Fatal]
  - Respiratory failure [Fatal]
